FAERS Safety Report 20293798 (Version 1)
Quarter: 2022Q1

REPORT INFORMATION
  Report Type: Spontaneous
  Country: US (occurrence: US)
  Receive Date: 20220104
  Receipt Date: 20220104
  Transmission Date: 20220423
  Serious: Yes (Other)
  Sender: FDA-Public Use
  Company Number: US-TAKEDA-2022TUS000187

PATIENT
  Age: 60 Year
  Sex: Female

DRUGS (1)
  1. TRINTELLIX [Suspect]
     Active Substance: VORTIOXETINE HYDROBROMIDE
     Indication: Depression
     Dosage: 5 MILLIGRAM
     Route: 065

REACTIONS (7)
  - Depressed level of consciousness [Unknown]
  - Lethargy [Unknown]
  - Confusional state [Unknown]
  - Feeling abnormal [Unknown]
  - Abulia [Unknown]
  - Weight increased [Unknown]
  - Nausea [Unknown]
